FAERS Safety Report 9954234 (Version 1)
Quarter: 2014Q1

REPORT INFORMATION
  Report Type: Spontaneous
  Country: US (occurrence: US)
  Receive Date: 20140304
  Receipt Date: 20140304
  Transmission Date: 20141002
  Serious: Yes (Hospitalization)
  Sender: FDA-Public Use
  Company Number: US-PERRIGO-14US001839

PATIENT
  Age: 15 Year
  Sex: Male

DRUGS (2)
  1. IBUPROFEN 200 MG 604 [Suspect]
     Indication: MUSCULOSKELETAL DISCOMFORT
     Dosage: 1000MG TID-QID
     Route: 048
  2. IBUPROFEN 200 MG 604 [Suspect]
     Dosage: } 3.2 G DAILY
     Route: 048

REACTIONS (8)
  - Perihepatic abscess [Recovered/Resolved]
  - Gastric ulcer [Recovered/Resolved]
  - Fatigue [Recovered/Resolved]
  - Decreased appetite [Recovered/Resolved]
  - Abnormal loss of weight [Recovered/Resolved]
  - Leukocytosis [Recovered/Resolved]
  - Granulocytosis [Recovered/Resolved]
  - Overdose [Unknown]
